FAERS Safety Report 12271794 (Version 1)
Quarter: 2016Q2

REPORT INFORMATION
  Report Type: Spontaneous
  Country: US (occurrence: US)
  Receive Date: 20160415
  Receipt Date: 20160415
  Transmission Date: 20160815
  Serious: Yes (Other)
  Sender: FDA-Public Use
  Company Number: US-CELGENEUS-USA-2016042280

PATIENT
  Sex: Male

DRUGS (1)
  1. THALOMID [Suspect]
     Active Substance: THALIDOMIDE
     Indication: PLASMA CELL MYELOMA
     Dosage: 100 MILLIGRAM
     Route: 048
     Dates: start: 201602

REACTIONS (9)
  - Weight increased [Unknown]
  - Dry mouth [Unknown]
  - Arthralgia [Unknown]
  - Muscle spasms [Unknown]
  - Oedema peripheral [Unknown]
  - Renal failure [Unknown]
  - Feeling abnormal [Unknown]
  - Lip dry [Unknown]
  - Headache [Unknown]

NARRATIVE: CASE EVENT DATE: 2016
